FAERS Safety Report 16437523 (Version 1)
Quarter: 2019Q2

REPORT INFORMATION
  Report Type: Spontaneous
  Country: DK (occurrence: DK)
  Receive Date: 20190615
  Receipt Date: 20190615
  Transmission Date: 20190711
  Serious: Yes (Death)
  Sender: FDA-Public Use
  Company Number: DK-ACCORD-132749

PATIENT
  Age: 42 Year
  Sex: Female

DRUGS (9)
  1. VERAPAMIL HEXAL [Suspect]
     Active Substance: VERAPAMIL HYDROCHLORIDE
     Indication: CLUSTER HEADACHE
     Dosage: 80 MG.
     Route: 048
     Dates: start: 20170919
  2. CLONAZEPAM. [Suspect]
     Active Substance: CLONAZEPAM
     Indication: PRODUCT USED FOR UNKNOWN INDICATION
     Route: 048
  3. AMITRIPTYLIN DAK [Suspect]
     Active Substance: AMITRIPTYLINE
     Indication: DEPRESSION
     Route: 048
     Dates: start: 20140617
  4. PREGABALIN. [Suspect]
     Active Substance: PREGABALIN
     Indication: ANXIETY
     Route: 048
     Dates: start: 20160708
  5. METOCLOPRAMIDE ACCORD [Suspect]
     Active Substance: METOCLOPRAMIDE
     Indication: VOMITING
     Dosage: DOSAGE: 1 TABLET, AT MOST 3 TIMES DAILY.
     Route: 048
     Dates: start: 20140829
  6. TRAMADOL AUROBINDO [Suspect]
     Active Substance: TRAMADOL HYDROCHLORIDE
     Indication: PAIN
     Dosage: 1 CAPSULE AT A MAXIMUM OF 3 TIMES DAILY.
     Route: 048
  7. DIMETHYL-3/3-DIPHENYL-1-METHYL/KETOBEMIDONE HYDROCHLORIDE [Suspect]
     Active Substance: DIMETHYLAMINODIPHENYLBUTENE HYDROCHLORIDE\KETOBEMIDONE HYDROCHLORIDE
     Indication: PAIN
     Dosage: 5 + 25 MG. DOSAGE:1 TABLET, AT MOST 3 TIMES DAILY.
     Route: 048
     Dates: start: 20141114
  8. NORITREN [Suspect]
     Active Substance: NORTRIPTYLINE HYDROCHLORIDE
     Indication: DEPRESSION
     Dosage: 50 MG.
     Route: 048
     Dates: start: 20140121
  9. LAMOTRIGINE. [Concomitant]
     Active Substance: LAMOTRIGINE
     Indication: PAIN
     Dosage: 50 MG.
     Route: 048
     Dates: start: 20141008

REACTIONS (3)
  - Sedation [Fatal]
  - Toxicity to various agents [Fatal]
  - Respiratory depression [Fatal]

NARRATIVE: CASE EVENT DATE: 20190303
